FAERS Safety Report 15116769 (Version 2)
Quarter: 2018Q3

REPORT INFORMATION
  Report Type: Spontaneous
  Country: US (occurrence: US)
  Receive Date: 20180706
  Receipt Date: 20180801
  Transmission Date: 20181010
  Serious: No
  Sender: FDA-Public Use
  Company Number: US-SHIRE-US201823546

PATIENT
  Age: 81 Year
  Sex: Female
  Weight: 58.96 kg

DRUGS (1)
  1. XIIDRA [Suspect]
     Active Substance: LIFITEGRAST
     Indication: DRY EYE
     Dosage: 1 GTT, 2X/DAY:BID
     Route: 047
     Dates: start: 201801, end: 201802

REACTIONS (8)
  - Instillation site discharge [Recovered/Resolved]
  - Instillation site lacrimation [Recovered/Resolved]
  - Instillation site pain [Recovered/Resolved]
  - Vision blurred [Recovered/Resolved]
  - Instillation site reaction [Recovered/Resolved]
  - Eye pain [Recovered/Resolved]
  - Instillation site irritation [Recovered/Resolved]
  - Drug ineffective [Unknown]

NARRATIVE: CASE EVENT DATE: 201801
